FAERS Safety Report 5232028-6 (Version None)
Quarter: 2007Q1

REPORT INFORMATION
  Report Type: 
  Country: None (occurrence: None)
  Receive Date: 20070202
  Receipt Date: 20070127
  Transmission Date: 20070707
  Serious: No
  Sender: FDA-Public Use
  Company Number: 232619

PATIENT
  Age: 12 Year
  Sex: Male
  Weight: 39.9 kg

DRUGS (1)
  1. XOLAIR [Suspect]
     Indication: ASTHMA
     Dosage: 225 MG, Q2W, SUBCUTANEOUS
     Route: 058
     Dates: start: 20041110, end: 20060927

REACTIONS (3)
  - ALOPECIA [None]
  - CONTUSION [None]
  - FULL BLOOD COUNT DECREASED [None]
